FAERS Safety Report 19094615 (Version 2)
Quarter: 2021Q2

REPORT INFORMATION
  Report Type: Spontaneous
  Country: US (occurrence: US)
  Receive Date: 20210406
  Receipt Date: 20210430
  Transmission Date: 20210717
  Serious: Yes (Death, Other)
  Sender: FDA-Public Use
  Company Number: US-AMGEN-USASP2021049663

PATIENT
  Age: 81 Year
  Sex: Female

DRUGS (1)
  1. PROLIA [Suspect]
     Active Substance: DENOSUMAB
     Indication: OSTEOPOROSIS POSTMENOPAUSAL
     Dosage: 60 MILLIGRAM, Q6MO
     Route: 030
     Dates: start: 20200601

REACTIONS (3)
  - Waldenstrom^s macroglobulinaemia [Unknown]
  - Incorrect route of product administration [Unknown]
  - Death [Fatal]

NARRATIVE: CASE EVENT DATE: 20200601
